FAERS Safety Report 9343388 (Version 2)
Quarter: 2014Q2

REPORT INFORMATION
  Report Type: Spontaneous
  Country: GB (occurrence: GB)
  Receive Date: 20130612
  Receipt Date: 20140425
  Transmission Date: 20141212
  Serious: Yes (Hospitalization)
  Sender: FDA-Public Use
  Company Number: GB-ROCHE-1168769

PATIENT
  Age: 52 Year
  Sex: Female

DRUGS (7)
  1. RIBAVIRIN [Suspect]
     Indication: HEPATITIS C
     Route: 048
     Dates: start: 20120812
  2. RIBAVIRIN [Suspect]
     Dosage: DOSE REDUCED
     Route: 048
     Dates: start: 20120812
  3. RIBAVIRIN [Suspect]
     Route: 048
     Dates: start: 20120821
  4. RIBAVIRIN [Suspect]
     Route: 048
     Dates: start: 2006
  5. RIBAVIRIN [Suspect]
     Dosage: DOSE REDUCED
     Route: 048
  6. INCIVO [Suspect]
     Indication: HEPATITIS C
     Route: 048
     Dates: start: 20120821, end: 20121113
  7. PEGINTRON [Concomitant]
     Indication: HEPATITIS C
     Route: 065
     Dates: start: 2006

REACTIONS (4)
  - Anaemia [Unknown]
  - Malaise [Unknown]
  - Pruritus [Unknown]
  - Rash [Recovered/Resolved]
